FAERS Safety Report 7282863-8 (Version None)
Quarter: 2011Q1

REPORT INFORMATION
  Report Type: 
  Country: None (occurrence: None)
  Receive Date: 20110209
  Receipt Date: 20110128
  Transmission Date: 20110831
  Serious: Yes (Other)
  Sender: FDA-Public Use
  Company Number: US-SANOFI-AVENTIS-2011SA005756

PATIENT

DRUGS (4)
  1. FLUOROURACIL [Suspect]
     Indication: COLORECTAL CANCER
     Route: 041
  2. ERLOTINIB [Suspect]
     Indication: COLORECTAL CANCER
     Route: 048
  3. LEUCOVORIN CALCIUM [Suspect]
     Indication: COLORECTAL CANCER
     Route: 041
  4. OXALIPLATIN [Suspect]
     Indication: COLORECTAL CANCER
     Route: 041

REACTIONS (1)
  - PNEUMATOSIS [None]
